FAERS Safety Report 5245705-8 (Version None)
Quarter: 2007Q1

REPORT INFORMATION
  Report Type: 
  Country: None (occurrence: None)
  Receive Date: 20070216
  Receipt Date: 20070205
  Transmission Date: 20070707
  Serious: Yes (Death, Hospitalization)
  Sender: FDA-Public Use
  Company Number: 430004M06USA

PATIENT
  Age: 71 Year
  Sex: Female
  Weight: 49 kg

DRUGS (6)
  1. NOVANTRONE [Suspect]
     Indication: ACUTE MYELOID LEUKAEMIA
     Dosage: 12 MG, 1 IN 1  DAYS, INTRAVENOUS (NOT OTHERWISE SPECIFIED)
     Route: 042
     Dates: start: 20051109, end: 20051113
  2. CEP-701 (INVESTIGATIONAL DRUG) [Suspect]
     Dosage: NOT REPORTED
  3. ETOPOSIDE [Suspect]
     Dosage: 146 MG, 1 IN 1 DAYS, INTRAVENOUS (NOT OTHERWISE SPECIFIED)
     Route: 042
     Dates: start: 20051109, end: 20051113
  4. CYTARABINE [Suspect]
     Dosage: 1.4 G, 1 IN 1 DAYS, INTRAVENOUS (NOT OTHERWISE SPECIFIED)
     Route: 042
     Dates: start: 20051109, end: 20051113
  5. DIPHENHYDRAMINE HCL [Concomitant]
  6. DEMEROL [Concomitant]

REACTIONS (5)
  - DIARRHOEA [None]
  - FAECES DISCOLOURED [None]
  - GASTROINTESTINAL HAEMORRHAGE [None]
  - MULTI-ORGAN FAILURE [None]
  - SMALL INTESTINAL OBSTRUCTION [None]
